FAERS Safety Report 21476533 (Version 3)
Quarter: 2022Q4

REPORT INFORMATION
  Report Type: Spontaneous
  Country: US (occurrence: US)
  Receive Date: 20221019
  Receipt Date: 20221219
  Transmission Date: 20230113
  Serious: Yes (Hospitalization, Other)
  Sender: FDA-Public Use
  Company Number: US-BAXTER-2022BAX021950

PATIENT
  Age: 40 Year
  Sex: Female
  Weight: 58.6 kg

DRUGS (36)
  1. DOXORUBICIN [Suspect]
     Active Substance: DOXORUBICIN
     Indication: Plasma cell myeloma
     Dosage: DOSAGE FORM: INJECTION, (VD-PACE)
     Route: 065
     Dates: start: 202204
  2. DOXORUBICIN [Suspect]
     Active Substance: DOXORUBICIN
     Dosage: BRIDGING THERAPY (VD-PACE)
     Route: 065
     Dates: start: 202205
  3. DOXORUBICIN [Suspect]
     Active Substance: DOXORUBICIN
     Dosage: (MODIFIED HYPER)
     Route: 065
     Dates: start: 202206
  4. CYCLOPHOSPHAMIDE [Suspect]
     Active Substance: CYCLOPHOSPHAMIDE
     Indication: Plasma cell myeloma
     Dosage: (VD-PACE)
     Route: 065
     Dates: start: 202204
  5. CYCLOPHOSPHAMIDE [Suspect]
     Active Substance: CYCLOPHOSPHAMIDE
     Dosage: BRIDGING THERAPY (VD-PACE)
     Route: 065
     Dates: start: 202205
  6. CYCLOPHOSPHAMIDE [Suspect]
     Active Substance: CYCLOPHOSPHAMIDE
     Dosage: (MODIFIED HYPER)
     Route: 065
     Dates: start: 202206
  7. VELCADE [Suspect]
     Active Substance: BORTEZOMIB
     Indication: Plasma cell myeloma
     Dosage: UNK
     Route: 065
     Dates: start: 201606
  8. VELCADE [Suspect]
     Active Substance: BORTEZOMIB
     Dosage: (VD-PACE)
     Route: 065
     Dates: start: 202204
  9. VELCADE [Suspect]
     Active Substance: BORTEZOMIB
     Dosage: BRIDGING THERAPY (VD-PACE)
     Route: 065
     Dates: start: 202205
  10. VELCADE [Suspect]
     Active Substance: BORTEZOMIB
     Dosage: (CONSOLIDATED THERAPY)
     Route: 065
  11. DEXAMETHASONE [Suspect]
     Active Substance: DEXAMETHASONE
     Indication: Plasma cell myeloma
     Dosage: UNK
     Route: 065
     Dates: start: 201606
  12. DEXAMETHASONE [Suspect]
     Active Substance: DEXAMETHASONE
     Dosage: UNK
     Route: 065
     Dates: start: 202112
  13. DEXAMETHASONE [Suspect]
     Active Substance: DEXAMETHASONE
     Dosage: UNK
     Route: 065
     Dates: start: 2022
  14. DEXAMETHASONE [Suspect]
     Active Substance: DEXAMETHASONE
     Dosage: (VD-PACE)
     Route: 065
     Dates: start: 202204
  15. DEXAMETHASONE [Suspect]
     Active Substance: DEXAMETHASONE
     Dosage: BRIDGING THERAPY (VD-PACE)
     Route: 065
     Dates: start: 202205
  16. DEXAMETHASONE [Suspect]
     Active Substance: DEXAMETHASONE
     Dosage: (MODIFIED HYPER)
     Route: 065
     Dates: start: 202206
  17. DEXAMETHASONE [Suspect]
     Active Substance: DEXAMETHASONE
     Dosage: (CONSOLIDATED THERAPY)
     Route: 065
  18. REVLIMID [Suspect]
     Active Substance: LENALIDOMIDE
     Indication: Plasma cell myeloma
     Dosage: UNK
     Route: 065
     Dates: start: 201606
  19. REVLIMID [Suspect]
     Active Substance: LENALIDOMIDE
     Dosage: UNK
     Route: 065
     Dates: start: 202112
  20. REVLIMID [Suspect]
     Active Substance: LENALIDOMIDE
     Dosage: (MAINTENANCE THERAPY- ACHIEVED COMPLETE RESPONSE (CR))
     Route: 065
  21. CISPLATIN [Suspect]
     Active Substance: CISPLATIN
     Indication: Plasma cell myeloma
     Dosage: (VD-PACE)
     Route: 065
     Dates: start: 202204
  22. CISPLATIN [Suspect]
     Active Substance: CISPLATIN
     Dosage: BRIDGING THERAPY (VD-PACE)
     Route: 065
     Dates: start: 202205
  23. ETOPOSIDE [Suspect]
     Active Substance: ETOPOSIDE
     Indication: Plasma cell myeloma
     Dosage: (VD-PACE)
     Route: 065
     Dates: start: 202204
  24. ETOPOSIDE [Suspect]
     Active Substance: ETOPOSIDE
     Dosage: BRIDGING THERAPY (VD-PACE)
     Route: 065
     Dates: start: 202205
  25. MELPHALAN [Suspect]
     Active Substance: MELPHALAN
     Indication: Plasma cell myeloma
     Dosage: 200 MG/M2
     Route: 065
     Dates: start: 20170111
  26. DARATUMUMAB [Suspect]
     Active Substance: DARATUMUMAB
     Indication: Plasma cell myeloma
     Dosage: UNK
     Route: 065
     Dates: start: 202112
  27. DARATUMUMAB [Suspect]
     Active Substance: DARATUMUMAB
     Dosage: UNK
     Route: 065
     Dates: start: 2022
  28. CARFILZOMIB [Suspect]
     Active Substance: CARFILZOMIB
     Indication: Plasma cell myeloma
     Dosage: UNK
     Route: 065
     Dates: start: 2022
  29. VINCRISTINE SULFATE [Suspect]
     Active Substance: VINCRISTINE SULFATE
     Indication: Plasma cell myeloma
     Dosage: (MODIFIED HYPER)
     Route: 065
     Dates: start: 202206
  30. GENETICALLY-MODIFIED AUTOLOGOUS T CELLS NOS [Suspect]
     Active Substance: GENETICALLY-MODIFIED AUTOLOGOUS T CELLS NOS
     Indication: Plasma cell myeloma
     Dosage: (BRIDGING THERAPY)
     Route: 065
     Dates: start: 202205
  31. LETERMOVIR [Concomitant]
     Active Substance: LETERMOVIR
     Indication: Product used for unknown indication
     Dosage: UNK
     Route: 065
  32. PROTONIX [Concomitant]
     Active Substance: PANTOPRAZOLE SODIUM
     Indication: Product used for unknown indication
     Dosage: UNK
     Route: 065
  33. MEPRON [Concomitant]
     Active Substance: ATOVAQUONE
     Indication: Product used for unknown indication
     Dosage: UNK
     Route: 065
  34. CARAFATE [Concomitant]
     Active Substance: SUCRALFATE
     Indication: Product used for unknown indication
     Dosage: UNK
     Route: 065
  35. ZOFRAN [Concomitant]
     Active Substance: ONDANSETRON HYDROCHLORIDE
     Indication: Product used for unknown indication
     Dosage: UNK
     Route: 065
  36. NAPROXEN [Concomitant]
     Active Substance: NAPROXEN
     Indication: Product used for unknown indication
     Dosage: UNK
     Route: 065

REACTIONS (5)
  - Plasma cell myeloma [Unknown]
  - Tumour associated fever [Unknown]
  - Therapy partial responder [Unknown]
  - Pyrexia [Unknown]
  - Fatigue [Unknown]

NARRATIVE: CASE EVENT DATE: 20220401
